FAERS Safety Report 7667159-4 (Version None)
Quarter: 2011Q3

REPORT INFORMATION
  Report Type: 
  Country: None (occurrence: None)
  Receive Date: 20110806
  Receipt Date: 20110427
  Transmission Date: 20111222
  Serious: No
  Sender: FDA-Public Use
  Company Number: US-ABBOTT-11P-163-0721898-00

PATIENT
  Sex: Male
  Weight: 145.28 kg

DRUGS (5)
  1. CRESTOR [Concomitant]
     Indication: PRODUCT USED FOR UNKNOWN INDICATION
  2. GLUCOSAMINE HYDROCHLORIDE HCL [Concomitant]
     Indication: PRODUCT USED FOR UNKNOWN INDICATION
  3. CHONDROITIN SULFATE SODIUM [Concomitant]
     Indication: PRODUCT USED FOR UNKNOWN INDICATION
  4. ASPIRIN [Concomitant]
     Indication: PRODUCT USED FOR UNKNOWN INDICATION
  5. NIASPAN [Suspect]
     Indication: LOW DENSITY LIPOPROTEIN INCREASED
     Dosage: AT BEDTIME
     Dates: start: 20110425

REACTIONS (1)
  - NASOPHARYNGITIS [None]
